FAERS Safety Report 19035993 (Version 1)
Quarter: 2021Q1

REPORT INFORMATION
  Report Type: Spontaneous
  Country: US (occurrence: US)
  Receive Date: 20210319
  Receipt Date: 20210319
  Transmission Date: 20210420
  Serious: Yes (Death)
  Sender: FDA-Public Use
  Company Number: None

PATIENT
  Age: 25 Month
  Sex: Male
  Weight: 10.1 kg

DRUGS (4)
  1. DOXORUBICIN HYDROCHLORIDE. [Suspect]
     Active Substance: DOXORUBICIN HYDROCHLORIDE
     Dates: end: 20100806
  2. CARBOPLATIN. [Suspect]
     Active Substance: CARBOPLATIN
     Dates: end: 20100712
  3. ETOPOSIDE (VP?16) [Suspect]
     Active Substance: ETOPOSIDE
     Dates: end: 20100714
  4. CYCLOPHOSPHAMIDE. [Suspect]
     Active Substance: CYCLOPHOSPHAMIDE
     Dates: end: 20100806

REACTIONS (4)
  - Haemoglobin decreased [None]
  - Acute myeloid leukaemia [None]
  - White blood cell count decreased [None]
  - Platelet count decreased [None]

NARRATIVE: CASE EVENT DATE: 20110811
